FAERS Safety Report 23681791 (Version 1)
Quarter: 2024Q1

REPORT INFORMATION
  Report Type: Report from Study
  Country: CA (occurrence: CA)
  Receive Date: 20240328
  Receipt Date: 20240328
  Transmission Date: 20240409
  Serious: Yes (Hospitalization, Other)
  Sender: FDA-Public Use
  Company Number: CA-GLAXOSMITHKLINE-CA2024037449

PATIENT

DRUGS (1)
  1. MEPOLIZUMAB [Suspect]
     Active Substance: MEPOLIZUMAB
     Indication: Asthma
     Dosage: 100 MG, Q4W
     Route: 058
     Dates: start: 20220209

REACTIONS (8)
  - Respiratory syncytial virus infection [Unknown]
  - Myelodysplastic syndrome [Unknown]
  - Haemoglobin decreased [Unknown]
  - Oxygen saturation decreased [Unknown]
  - Sleep apnoea syndrome [Not Recovered/Not Resolved]
  - Eosinophil count decreased [Unknown]
  - Blood immunoglobulin E decreased [Unknown]
  - Therapeutic response unexpected [Unknown]
